FAERS Safety Report 8080574-2 (Version None)
Quarter: 2012Q1

REPORT INFORMATION
  Report Type: 
  Country: None (occurrence: None)
  Receive Date: 20120130
  Receipt Date: 20120120
  Transmission Date: 20120608
  Serious: Yes (Other)
  Sender: FDA-Public Use
  Company Number: RU-SANOFI-AVENTIS-2012SA004249

PATIENT
  Age: 53 Year
  Sex: Male

DRUGS (7)
  1. SIMVASTATIN [Concomitant]
     Route: 048
  2. PLAVIX [Suspect]
     Indication: THROMBOSIS PROPHYLAXIS
     Route: 048
     Dates: start: 20120113
  3. PLAVIX [Suspect]
     Route: 048
     Dates: start: 20120113
  4. CORONAL [Concomitant]
     Route: 048
  5. ACETYLSALICYLIC ACID/MAGNESIUM OXIDE [Concomitant]
     Indication: THROMBOSIS PROPHYLAXIS
     Route: 048
  6. ENALAPRIL [Concomitant]
     Route: 048
  7. PANTOPRAZOLE SODIUM [Concomitant]
     Indication: PROPHYLAXIS
     Route: 048

REACTIONS (2)
  - HAEMATOCHEZIA [None]
  - HAEMORRHOIDS [None]
